FAERS Safety Report 15123217 (Version 1)
Quarter: 2018Q3

REPORT INFORMATION
  Report Type: Report from Study
  Country: US (occurrence: US)
  Receive Date: 20180709
  Receipt Date: 20180709
  Transmission Date: 20181010
  Serious: Yes (Other)
  Sender: FDA-Public Use
  Company Number: US-GILEAD-2018-0342552

PATIENT
  Age: 76 Year
  Sex: Female
  Weight: 70.3 kg

DRUGS (1)
  1. AMBRISENTAN [Suspect]
     Active Substance: AMBRISENTAN
     Indication: PULMONARY ARTERIAL HYPERTENSION
     Dosage: 10 MG, QD
     Route: 065

REACTIONS (5)
  - Neuroma [Unknown]
  - Facial bones fracture [Unknown]
  - Weight increased [Unknown]
  - Fluid retention [Not Recovered/Not Resolved]
  - Nasal obstruction [Not Recovered/Not Resolved]
